FAERS Safety Report 25067522 (Version 1)
Quarter: 2025Q1

REPORT INFORMATION
  Report Type: Spontaneous
  Country: US (occurrence: None)
  Receive Date: 20250311
  Receipt Date: 20250311
  Transmission Date: 20250409
  Serious: Yes (Life-Threatening, Other)
  Sender: FDA-CTU
  Company Number: None

PATIENT
  Age: 79 Year
  Sex: Male
  Weight: 90 kg

DRUGS (3)
  1. CAMCEVI [Suspect]
     Active Substance: LEUPROLIDE MESYLATE
     Indication: Prostate cancer
     Dates: start: 20221115, end: 20240815
  2. ZYTIGA [Suspect]
     Active Substance: ABIRATERONE ACETATE
  3. PREDNISONE [Suspect]
     Active Substance: PREDNISONE

REACTIONS (6)
  - Dizziness [None]
  - Balance disorder [None]
  - Fall [None]
  - Pneumonia [None]
  - Coordination abnormal [None]
  - Grip strength decreased [None]

NARRATIVE: CASE EVENT DATE: 20230104
